FAERS Safety Report 8650579 (Version 3)
Quarter: 2012Q4

REPORT INFORMATION
  Report Type: 
  Country: DE (occurrence: DE)
  Receive Date: 20120705
  Receipt Date: 20121219
  Transmission Date: 20130627
  Serious: Yes (Hospitalization)
  Sender: FDA-Public Use
  Company Number: DE-BAYER-2012-065965

PATIENT
  Age: 54 Year
  Sex: Male
  Weight: 96 kg

DRUGS (7)
  1. CIPROFLOXACIN MONOHYDROCHLORIDE [Suspect]
     Indication: ANTIBACTERIAL PROPHYLAXIS
     Dosage: 500 mg, BID
     Route: 048
     Dates: start: 20111213, end: 20120105
  2. POSACONAZOLE [Suspect]
     Indication: ANTIFUNGAL PROPHYLAXIS
     Dosage: 400 mg, BID
     Route: 048
     Dates: start: 20111220, end: 20111227
  3. EXJADE [Suspect]
     Indication: HEPATIC SIDEROSIS
     Dosage: 125 mg, BID
     Route: 048
     Dates: start: 20111220, end: 20120105
  4. PANTOPRAZOLE [Concomitant]
     Indication: REFLUX OESOPHAGITIS
     Dosage: 40 mg, QD
     Route: 048
     Dates: start: 201110, end: 20120108
  5. ATACAND [CANDESARTAN CILEXETIL] [Concomitant]
     Indication: HYPERTENSION ARTERIAL
     Dosage: 8 mg, QD
     Route: 048
     Dates: start: 201103, end: 20120108
  6. COTRIM [Concomitant]
     Indication: PNEUMOCYSTIS CARINII PROPHYLAXIS
     Dosage: 960 mg, TID
     Route: 048
     Dates: start: 201103, end: 20120108
  7. ACICLOVIR [Concomitant]
     Indication: ANTIVIRAL PROPHYLAXIS
     Dosage: 400 mg, TID
     Route: 048
     Dates: start: 201108, end: 20120105

REACTIONS (2)
  - Acute hepatic failure [Not Recovered/Not Resolved]
  - Hepatic siderosis [None]
